FAERS Safety Report 10019673 (Version 2)
Quarter: 2014Q1

REPORT INFORMATION
  Report Type: Spontaneous
  Country: JP (occurrence: JP)
  Receive Date: 20140318
  Receipt Date: 20140325
  Transmission Date: 20141002
  Serious: Yes (Life-Threatening, Hospitalization, Other)
  Sender: FDA-Public Use
  Company Number: JP-PFIZER INC-2014072201

PATIENT
  Age: 61 Year
  Sex: Female
  Weight: 53 kg

DRUGS (3)
  1. SERTRALINE HCL [Suspect]
     Dosage: 25 MG, DAILY
     Route: 048
     Dates: start: 2008, end: 20120305
  2. ISOSORBIDE [Concomitant]
     Route: 048
  3. NIFEDIPINE [Concomitant]
     Route: 048

REACTIONS (2)
  - Neuroleptic malignant syndrome [Recovering/Resolving]
  - Arteriospasm coronary [Recovering/Resolving]
